FAERS Safety Report 4311918-2 (Version None)
Quarter: 2004Q1

REPORT INFORMATION
  Report Type: 
  Country: None (occurrence: None)
  Receive Date: 20040303
  Receipt Date: 20040206
  Transmission Date: 20041129
  Serious: Yes (Hospitalization)
  Sender: FDA-Public Use
  Company Number: 200402722

PATIENT
  Age: 36 Year
  Sex: Male

DRUGS (5)
  1. PEPCID AC [Suspect]
     Dosage: 10 MG, ONCE PO
     Route: 048
     Dates: start: 20040125, end: 20040125
  2. OTC CHINESE MEDICINE [Suspect]
     Dosage: PO
     Route: 048
     Dates: start: 20030206
  3. ZANTAC [Concomitant]
  4. BUCOSPAN (BUTYLSCOPOLAMINE BROMIDE) [Concomitant]
  5. PURSENNID (SENNOSIDES) [Concomitant]

REACTIONS (8)
  - ALANINE AMINOTRANSFERASE INCREASED [None]
  - ASPARTATE AMINOTRANSFERASE INCREASED [None]
  - BLOOD ALKALINE PHOSPHATASE INCREASED [None]
  - BLOOD BILIRUBIN INCREASED [None]
  - BLOOD LACTATE DEHYDROGENASE INCREASED [None]
  - HEPATIC FUNCTION ABNORMAL [None]
  - LYMPHOCYTE STIMULATION TEST POSITIVE [None]
  - OCULAR ICTERUS [None]
